FAERS Safety Report 7915145-9 (Version None)
Quarter: 2011Q4

REPORT INFORMATION
  Report Type: 
  Country: None (occurrence: None)
  Receive Date: 20111115
  Receipt Date: 20111104
  Transmission Date: 20120403
  Serious: Yes (Other)
  Sender: FDA-Public Use
  Company Number: NL-ACTELION-A-CH2011-55457

PATIENT
  Sex: Female

DRUGS (1)
  1. TRACLEER [Suspect]
     Indication: SKIN ULCER
     Dosage: UNK MG, UNK
     Route: 048

REACTIONS (5)
  - MALAISE [None]
  - NAUSEA [None]
  - ABDOMINAL DISCOMFORT [None]
  - VOMITING [None]
  - WEIGHT DECREASED [None]
